FAERS Safety Report 11266003 (Version 1)
Quarter: 2015Q2

REPORT INFORMATION
  Report Type: Spontaneous
  Country: US (occurrence: None)
  Receive Date: 20150625
  Receipt Date: 20150625
  Transmission Date: 20150821
  Serious: Yes (Other)
  Sender: FDA-Public Use
  Company Number: A-US2015-112202

PATIENT
  Age: 75 Year
  Sex: Female

DRUGS (9)
  1. OPSUMIT [Suspect]
     Active Substance: MACITENTAN
     Indication: PULMONARY ARTERIAL HYPERTENSION
     Route: 048
     Dates: start: 20150114, end: 20150126
  2. VENTOLIN HFA [Concomitant]
     Active Substance: ALBUTEROL SULFATE
  3. DILTIAZEM CD (DILTIAZEM HYDROCHLORIDE) [Concomitant]
  4. SYMBICORT [Concomitant]
     Active Substance: BUDESONIDE\FORMOTEROL FUMARATE DIHYDRATE
  5. OXYGEN (OXYGEN) [Concomitant]
     Active Substance: OXYGEN
  6. OPSUMIT [Concomitant]
     Active Substance: MACITENTAN
     Indication: PULMONARY ARTERIAL HYPERTENSION
     Route: 048
     Dates: start: 20150114, end: 20150126
  7. ALLEGRA (FEXOFENADINE HYDROCHLORIDE) [Concomitant]
  8. NASACORT (TRIAMCINOLONE ACETONIDE) [Concomitant]
  9. LASIX [Concomitant]
     Active Substance: FUROSEMIDE

REACTIONS (6)
  - Asthenia [None]
  - Dyspnoea exertional [None]
  - Oxygen saturation abnormal [None]
  - Weight increased [None]
  - Dyspnoea [None]
  - Heart rate increased [None]

NARRATIVE: CASE EVENT DATE: 20150115
